FAERS Safety Report 15691778 (Version 1)
Quarter: 2018Q4

REPORT INFORMATION
  Report Type: Spontaneous
  Country: US (occurrence: US)
  Receive Date: 20181205
  Receipt Date: 20181205
  Transmission Date: 20190205
  Serious: Yes (Hospitalization, Disabling, Congenital Anomaly)
  Sender: FDA-Public Use
  Company Number: None

PATIENT
  Sex: Female
  Weight: 103.05 kg

DRUGS (9)
  1. METFORMIN [Concomitant]
     Active Substance: METFORMIN HYDROCHLORIDE
  2. LOSARTAN. [Concomitant]
     Active Substance: LOSARTAN
  3. ALBUTEROL INHALATION [Concomitant]
     Active Substance: ALBUTEROL
  4. GLIPIZIDE. [Concomitant]
     Active Substance: GLIPIZIDE
  5. ATROVASTATIN [Suspect]
     Active Substance: ATORVASTATIN CALCIUM
     Indication: HYPERLIPIDAEMIA
     Route: 048
     Dates: start: 20150915, end: 20180206
  6. HYDROCHLOROTHIAZIDE. [Concomitant]
     Active Substance: HYDROCHLOROTHIAZIDE
  7. FERROUS SULFATE. [Concomitant]
     Active Substance: FERROUS SULFATE
  8. POTASSIUM [Concomitant]
     Active Substance: POTASSIUM
  9. FLUTICASONE/SALMETEROL INHALATION [Concomitant]

REACTIONS (2)
  - Muscle necrosis [None]
  - Autoimmune disorder [None]
